FAERS Safety Report 4332149-6 (Version None)
Quarter: 2004Q2

REPORT INFORMATION
  Report Type: 
  Country: None (occurrence: None)
  Receive Date: 20040401
  Receipt Date: 20040401
  Transmission Date: 20050107
  Serious: No
  Sender: FDA-Public Use
  Company Number: None

PATIENT
  Sex: Male
  Weight: 79.3 kg

DRUGS (1)
  1. IRON DEXTRAN [Suspect]
     Dosage: 100 MG IV
     Route: 042
     Dates: start: 20040115, end: 20040209

REACTIONS (6)
  - BACK PAIN [None]
  - CHEST PAIN [None]
  - DYSPNOEA [None]
  - HYPERHIDROSIS [None]
  - RESPIRATORY RATE INCREASED [None]
  - TACHYCARDIA [None]
